FAERS Safety Report 22325091 (Version 1)
Quarter: 2023Q2

REPORT INFORMATION
  Report Type: Spontaneous
  Country: FR (occurrence: FR)
  Receive Date: 20230516
  Receipt Date: 20230516
  Transmission Date: 20230722
  Serious: Yes (Life-Threatening)
  Sender: FDA-Public Use
  Company Number: None

PATIENT
  Age: 40 Year
  Sex: Female

DRUGS (1)
  1. DOSTINEX [Suspect]
     Active Substance: CABERGOLINE
     Indication: Lactation inhibition therapy
     Dosage: 1 MG, 1X/DAY
     Route: 048
     Dates: start: 20230204, end: 20230204

REACTIONS (4)
  - Reversible cerebral vasoconstriction syndrome [Recovered/Resolved]
  - Intracranial pressure increased [Recovered/Resolved]
  - Brain oedema [Recovered/Resolved]
  - Haemorrhagic stroke [Recovered/Resolved with Sequelae]

NARRATIVE: CASE EVENT DATE: 20230206
